FAERS Safety Report 21035203 (Version 1)
Quarter: 2022Q3

REPORT INFORMATION
  Report Type: Spontaneous
  Country: ES (occurrence: ES)
  Receive Date: 20220701
  Receipt Date: 20220701
  Transmission Date: 20221026
  Serious: Yes (Other)
  Sender: FDA-Public Use
  Company Number: ES-UCBSA-2022036336

PATIENT
  Age: 5 Year
  Sex: Male

DRUGS (3)
  1. LEVETIRACETAM [Suspect]
     Active Substance: LEVETIRACETAM
     Indication: Seizure
     Dosage: UNKNOWN DOSE
  2. VALPROATE [Suspect]
     Active Substance: VALPROIC ACID
     Indication: Seizure
     Dosage: UNKNOWN DOSE
  3. CLOBAZAM [Suspect]
     Active Substance: CLOBAZAM
     Indication: Seizure
     Dosage: UNKNOWN DOSE

REACTIONS (5)
  - Tonic convulsion [Unknown]
  - Atonic seizures [Unknown]
  - Generalised tonic-clonic seizure [Unknown]
  - Myoclonic epilepsy [Unknown]
  - Multiple-drug resistance [Unknown]
